FAERS Safety Report 4863544-4 (Version None)
Quarter: 2005Q4

REPORT INFORMATION
  Report Type: 
  Country: None (occurrence: None)
  Receive Date: 20051222
  Receipt Date: 20050418
  Transmission Date: 20060501
  Serious: No
  Sender: FDA-Public Use
  Company Number: US-GLAXOSMITHKLINE-A0554508A

PATIENT
  Age: 72 Year
  Sex: Female

DRUGS (16)
  1. FLONASE [Suspect]
     Dosage: 2SPR PER DAY
     Route: 045
  2. SALINE [Concomitant]
  3. DILTIAZEM HCL [Concomitant]
  4. LISINOPRIL [Concomitant]
  5. HYDROCHLOROTHIAZIDE [Concomitant]
  6. CELEBREX [Concomitant]
  7. EXTRA STRENGTH TYLENOL [Concomitant]
  8. LIPITOR [Concomitant]
  9. L THYROXINE [Concomitant]
  10. CLARINEX [Concomitant]
  11. GLUCOSAMINE CHONDROITIN [Concomitant]
  12. OSCAL [Concomitant]
  13. CALTRATE [Concomitant]
  14. CENTRUM SILVER [Concomitant]
  15. ASPIRIN [Concomitant]
  16. CARTIA XT [Concomitant]

REACTIONS (2)
  - EPISTAXIS [None]
  - NASAL ULCER [None]
